FAERS Safety Report 5877976-9 (Version None)
Quarter: 2008Q3

REPORT INFORMATION
  Report Type: 
  Country: None (occurrence: None)
  Receive Date: 20080909
  Receipt Date: 20080909
  Transmission Date: 20090109
  Serious: No
  Sender: FDA-Public Use
  Company Number: None

PATIENT
  Sex: Male
  Weight: 52 kg

DRUGS (4)
  1. FLUOROURACIL [Suspect]
     Dosage: 4490 MG
  2. CETUXIMAB [Suspect]
     Dosage: 810 MG
  3. LEUCOVORIN CALCIUM [Suspect]
     Dosage: 650 MG
  4. OXALIPLATIN [Suspect]
     Dosage: 44 MG

REACTIONS (1)
  - NEUTROPENIA [None]
